FAERS Safety Report 7358510-3 (Version None)
Quarter: 2011Q1

REPORT INFORMATION
  Report Type: 
  Country: None (occurrence: None)
  Receive Date: 20110317
  Receipt Date: 20110308
  Transmission Date: 20110831
  Serious: Yes (Other)
  Sender: FDA-Public Use
  Company Number: US-JNJFOC-20110304191

PATIENT

DRUGS (9)
  1. METHOTREXATE [Suspect]
     Indication: DRUG EXPOSURE DURING PREGNANCY
     Route: 064
  2. DOXORUBICIN HCL [Suspect]
     Route: 064
  3. IFOSFAMIDE [Suspect]
     Indication: DRUG EXPOSURE DURING PREGNANCY
     Route: 064
  4. CYCLOPHOSPHAMIDE [Suspect]
     Indication: DRUG EXPOSURE DURING PREGNANCY
     Route: 064
  5. ETOPOSIDE [Suspect]
     Indication: DRUG EXPOSURE DURING PREGNANCY
     Route: 064
  6. CYTARABINE [Suspect]
     Indication: DRUG EXPOSURE DURING PREGNANCY
     Route: 064
  7. DOXORUBICIN HCL [Suspect]
     Indication: DRUG EXPOSURE DURING PREGNANCY
     Route: 064
  8. DOXORUBICIN HCL [Suspect]
     Route: 064
  9. DOXORUBICIN HCL [Suspect]
     Route: 064

REACTIONS (1)
  - PREMATURE BABY [None]
